FAERS Safety Report 19690286 (Version 2)
Quarter: 2021Q3

REPORT INFORMATION
  Report Type: Spontaneous
  Country: JP (occurrence: JP)
  Receive Date: 20210812
  Receipt Date: 20210909
  Transmission Date: 20211014
  Serious: Yes (Other)
  Sender: FDA-Public Use
  Company Number: JP-GLAXOSMITHKLINE-JP2021169368

PATIENT
  Sex: Female

DRUGS (1)
  1. ZEJULA [Suspect]
     Active Substance: NIRAPARIB
     Indication: OVARIAN CANCER
     Dosage: 200 MILLIGRAM
     Route: 048
     Dates: start: 202107

REACTIONS (5)
  - Vomiting [Recovered/Resolved]
  - Off label use [Unknown]
  - Nausea [Recovered/Resolved]
  - Hyperthyroidism [Unknown]
  - Product use issue [Unknown]

NARRATIVE: CASE EVENT DATE: 202107
